FAERS Safety Report 20808172 (Version 1)
Quarter: 2022Q2

REPORT INFORMATION
  Report Type: Spontaneous
  Country: GR (occurrence: GR)
  Receive Date: 20220510
  Receipt Date: 20220510
  Transmission Date: 20220721
  Serious: Yes (Hospitalization, Other)
  Sender: FDA-Public Use
  Company Number: GR-BRISTOL-MYERS SQUIBB COMPANY-2022-030063

PATIENT
  Age: 40 Year
  Sex: Male

DRUGS (1)
  1. LUSPATERCEPT [Suspect]
     Active Substance: LUSPATERCEPT
     Indication: Thalassaemia beta

REACTIONS (4)
  - Headache [Unknown]
  - Vomiting [Unknown]
  - Hypertension [Unknown]
  - Pain [Recovering/Resolving]
